FAERS Safety Report 10538316 (Version 1)
Quarter: 2014Q4

REPORT INFORMATION
  Report Type: Spontaneous
  Country: DE (occurrence: None)
  Receive Date: 20141021
  Receipt Date: 20141021
  Transmission Date: 20150529
  Serious: Yes (Hospitalization)
  Sender: FDA-Public Use
  Company Number: 2014-20439

PATIENT
  Age: 53 Year
  Sex: Male
  Weight: 115 kg

DRUGS (1)
  1. VEGF TRAP-EYE OR LASER TREATMENT (CODE NOT BROKEN) [Suspect]
     Active Substance: AFLIBERCEPT
     Indication: DIABETIC RETINAL OEDEMA
     Route: 031
     Dates: start: 20140402, end: 20140825

REACTIONS (1)
  - Diabetic foot [None]

NARRATIVE: CASE EVENT DATE: 20140922
